FAERS Safety Report 7009689-4 (Version None)
Quarter: 2010Q3

REPORT INFORMATION
  Report Type: 
  Country: None (occurrence: None)
  Receive Date: 20100903
  Receipt Date: 20090623
  Transmission Date: 20110219
  Serious: No
  Sender: FDA-Public Use
  Company Number: 2009-00174

PATIENT
  Sex: Female
  Weight: 81.6475 kg

DRUGS (3)
  1. ZICAM COLD REMEDY GEL SWABS [Suspect]
     Indication: NASOPHARYNGITIS
  2. ZICAM COLD REMEDY GEL SWABS [Suspect]
     Indication: NASOPHARYNGITIS
  3. ADVAIR DISKUS 100/50 [Concomitant]

REACTIONS (1)
  - ANOSMIA [None]
